FAERS Safety Report 7330787-X (Version None)
Quarter: 2011Q1

REPORT INFORMATION
  Report Type: 
  Country: None (occurrence: None)
  Receive Date: 20110304
  Receipt Date: 20110301
  Transmission Date: 20110831
  Serious: No
  Sender: FDA-Public Use
  Company Number: US-PFIZER INC-2011044831

PATIENT
  Sex: Male
  Weight: 124.7 kg

DRUGS (5)
  1. SERTRALINE HYDROCHLORIDE [Suspect]
     Indication: ANXIETY
     Dosage: 100 MG, 1X/DAY
     Route: 048
     Dates: start: 20110212
  2. TAMIFLU [Concomitant]
     Dosage: 75 MG, 1X/DAY
  3. ZOLPIDEM [Concomitant]
     Dosage: 10 MG, UNK
  4. LOSARTAN [Concomitant]
     Dosage: 100 MG, UNK
  5. BENICAR HCT [Concomitant]
     Dosage: UNK

REACTIONS (1)
  - DRUG INEFFECTIVE [None]
